FAERS Safety Report 5318529-0 (Version None)
Quarter: 2007Q2

REPORT INFORMATION
  Report Type: 
  Country: None (occurrence: None)
  Receive Date: 20070501
  Receipt Date: 20070424
  Transmission Date: 20071010
  Serious: Yes (Disabling, Other)
  Sender: FDA-Public Use
  Company Number: OMPQ-PR-0505S-0740

PATIENT
  Sex: Male
  Weight: 77.1115 kg

DRUGS (1)
  1. OMNIPAQUE 140 [Suspect]
     Indication: NECK PAIN
     Dosage: 10 ML, SINGLE DOSE, I.T.
     Dates: start: 20000314, end: 20000314

REACTIONS (2)
  - ARACHNOIDITIS [None]
  - BLINDNESS [None]
